FAERS Safety Report 15378087 (Version 1)
Quarter: 2018Q3

REPORT INFORMATION
  Report Type: Spontaneous
  Country: US (occurrence: US)
  Receive Date: 20180906
  Receipt Date: 20180906
  Transmission Date: 20181010
  Serious: No
  Sender: FDA-Public Use
  Company Number: None

PATIENT
  Age: 61 Year
  Sex: Female

DRUGS (1)
  1. SIROLIMUS TAB 1MG [Suspect]
     Active Substance: SIROLIMUS
     Indication: RENAL TRANSPLANT
     Dates: start: 20180807

REACTIONS (2)
  - Fatigue [None]
  - Tongue ulceration [None]

NARRATIVE: CASE EVENT DATE: 20180829
